FAERS Safety Report 7607787-5 (Version None)
Quarter: 2011Q3

REPORT INFORMATION
  Report Type: 
  Country: None (occurrence: None)
  Receive Date: 20110713
  Receipt Date: 20110627
  Transmission Date: 20111222
  Serious: Yes (Other)
  Sender: FDA-Public Use
  Company Number: PHHY2011US40424

PATIENT
  Sex: Female

DRUGS (7)
  1. DEPAKOTE [Concomitant]
  2. PROZAC [Concomitant]
  3. INSULIN PUMP [Concomitant]
  4. ASCORBIC ACID [Concomitant]
  5. LAMICTAL [Concomitant]
  6. VITAMIN D [Concomitant]
  7. AFINITOR [Suspect]
     Indication: ASTROCYTOMA
     Dosage: 05 MG DAILY
     Route: 048
     Dates: start: 20110330

REACTIONS (6)
  - GINGIVAL SWELLING [None]
  - HAIR TEXTURE ABNORMAL [None]
  - BLOOD GLUCOSE INCREASED [None]
  - ANTICONVULSANT DRUG LEVEL DECREASED [None]
  - ALOPECIA [None]
  - TOOTH EROSION [None]
